FAERS Safety Report 16956698 (Version 1)
Quarter: 2019Q4

REPORT INFORMATION
  Report Type: Spontaneous
  Country: US (occurrence: US)
  Receive Date: 20190905
  Receipt Date: 20190905
  Transmission Date: 20200122
  Serious: Yes (Hospitalization)
  Sender: FDA-Public Use
  Company Number: None

PATIENT
  Age: 60 Year
  Sex: Male
  Weight: 58.6 kg

DRUGS (1)
  1. LENALIDOMIDE (CC-5013) (703813) [Suspect]
     Active Substance: LENALIDOMIDE
     Dates: end: 20190712

REACTIONS (2)
  - Chronic obstructive pulmonary disease [None]
  - Bronchitis [None]

NARRATIVE: CASE EVENT DATE: 20190712
